FAERS Safety Report 8435231-7 (Version None)
Quarter: 2012Q2

REPORT INFORMATION
  Report Type: 
  Country: None (occurrence: None)
  Receive Date: 20120614
  Receipt Date: 20120608
  Transmission Date: 20120825
  Serious: Yes (Death)
  Sender: FDA-Public Use
  Company Number: JP-ASTELLAS-2012JP005263

PATIENT
  Age: 71 Year
  Sex: Male

DRUGS (3)
  1. CEFEPIME [Concomitant]
     Indication: HAEMOPHILUS INFECTION
     Dosage: UNK
     Route: 065
     Dates: start: 20111201
  2. FUNGUARD [Suspect]
     Indication: BRONCHOPULMONARY ASPERGILLOSIS
     Dosage: UNK
     Route: 065
     Dates: start: 20111201
  3. CEFTERAM PIVOXIL [Concomitant]
     Indication: HAEMOPHILUS INFECTION
     Dosage: UNK
     Route: 048
     Dates: start: 20111201

REACTIONS (2)
  - BRONCHOPULMONARY ASPERGILLOSIS [None]
  - DRUG INEFFECTIVE [None]
